FAERS Safety Report 15826485 (Version 2)
Quarter: 2019Q1

REPORT INFORMATION
  Report Type: Report from Study
  Country: US (occurrence: US)
  Receive Date: 20190115
  Receipt Date: 20190122
  Transmission Date: 20190417
  Serious: Yes (Hospitalization)
  Sender: FDA-Public Use
  Company Number: PHHO2018US011260

PATIENT
  Age: 55 Year
  Sex: Male

DRUGS (11)
  1. CLOBAZAM. [Suspect]
     Active Substance: CLOBAZAM
     Dosage: 5 MG, QD
     Route: 048
     Dates: start: 20181013, end: 20181017
  2. GSK2118436 [Suspect]
     Active Substance: DABRAFENIB
     Indication: MALIGNANT MELANOMA
     Dosage: 150 MG, BID
     Route: 048
     Dates: start: 20180612, end: 20181009
  3. HYDROXYCHLOROQUINE [Suspect]
     Active Substance: HYDROXYCHLOROQUINE
     Dosage: 400 MG, BID
     Route: 048
     Dates: start: 20180821, end: 20181009
  4. LAMICTAL [Suspect]
     Active Substance: LAMOTRIGINE
     Dosage: 200 MG, BID
     Route: 048
     Dates: start: 20181012
  5. GSK1120212 [Suspect]
     Active Substance: TRAMETINIB
     Indication: MALIGNANT MELANOMA
     Dosage: 2 MG, QD
     Route: 048
     Dates: start: 20180612, end: 20181009
  6. CLOBAZAM. [Suspect]
     Active Substance: CLOBAZAM
     Indication: SEIZURE
     Dosage: 10 MG, QD
     Route: 048
     Dates: start: 20180809, end: 20181012
  7. LAMICTAL [Suspect]
     Active Substance: LAMOTRIGINE
     Indication: SEIZURE
     Dosage: 300 MG, BID
     Route: 048
     Dates: start: 201602, end: 20181012
  8. HYDROXYCHLOROQUINE [Suspect]
     Active Substance: HYDROXYCHLOROQUINE
     Indication: MALIGNANT MELANOMA
     Dosage: 600 MG, BID
     Route: 048
     Dates: start: 20180619, end: 20180725
  9. CLOBAZAM. [Suspect]
     Active Substance: CLOBAZAM
     Dosage: 2.5 MG, QD
     Route: 048
     Dates: start: 20181018
  10. LACOSAMIDE. [Suspect]
     Active Substance: LACOSAMIDE
     Indication: SEIZURE
     Dosage: 250 MG, BID
     Route: 048
     Dates: start: 201602, end: 20181011
  11. LACOSAMIDE. [Suspect]
     Active Substance: LACOSAMIDE
     Dosage: 200 MG, BID
     Route: 048
     Dates: start: 20181012

REACTIONS (1)
  - Encephalopathy [Recovering/Resolving]

NARRATIVE: CASE EVENT DATE: 20181011
